FAERS Safety Report 12608172 (Version 7)
Quarter: 2017Q4

REPORT INFORMATION
  Report Type: Spontaneous
  Country: US (occurrence: US)
  Receive Date: 20160729
  Receipt Date: 20171010
  Transmission Date: 20180320
  Serious: Yes (Hospitalization, Other)
  Sender: FDA-Public Use
  Company Number: US-BAYER-2016-146978

PATIENT
  Age: 62 Year
  Sex: Female
  Weight: 61.22 kg

DRUGS (2)
  1. BABY ASPIRIN [Concomitant]
     Active Substance: ASPIRIN
     Dosage: UNK
  2. COPPERTONE SPORT SPF 50 [Suspect]
     Active Substance: AVOBENZONE\HOMOSALATE\OCTISALATE\OCTOCRYLENE\OXYBENZONE
     Dosage: USED ONLY ONE TIME, ONCE
     Route: 061
     Dates: start: 20160723, end: 20160723

REACTIONS (20)
  - Exfoliative rash [Recovering/Resolving]
  - Application site pain [Unknown]
  - Hypersensitivity [Recovering/Resolving]
  - Rash macular [Recovering/Resolving]
  - Pain of skin [Recovering/Resolving]
  - Rash generalised [Unknown]
  - Contusion [None]
  - Pain [None]
  - Stress [None]
  - Emotional distress [None]
  - Hypersensitivity [Not Recovered/Not Resolved]
  - Application site rash [Unknown]
  - Burning sensation [None]
  - Oral discomfort [None]
  - Bipolar disorder [None]
  - Dermatitis contact [Unknown]
  - Pain [Recovering/Resolving]
  - Skin burning sensation [Recovering/Resolving]
  - Application site pain [Recovering/Resolving]
  - Genital herpes [None]

NARRATIVE: CASE EVENT DATE: 20160723
